FAERS Safety Report 8509024-6 (Version None)
Quarter: 2012Q3

REPORT INFORMATION
  Report Type: 
  Country: None (occurrence: None)
  Receive Date: 20120713
  Receipt Date: 20120710
  Transmission Date: 20120928
  Serious: Yes (Other)
  Sender: FDA-Public Use
  Company Number: BR-GLAXOSMITHKLINE-A0984293A

PATIENT
  Sex: Female

DRUGS (1)
  1. NIQUITIN 14MG [Suspect]
     Indication: SMOKING CESSATION THERAPY
     Dosage: 1PAT PER DAY
     Route: 062
     Dates: start: 20120625

REACTIONS (2)
  - INSOMNIA [None]
  - HALLUCINATION [None]
